FAERS Safety Report 7875838-9 (Version None)
Quarter: 2011Q4

REPORT INFORMATION
  Report Type: 
  Country: None (occurrence: None)
  Receive Date: 20111031
  Receipt Date: 20111020
  Transmission Date: 20120403
  Serious: Yes (Other)
  Sender: FDA-Public Use
  Company Number: PHFR2011GB01820

PATIENT
  Sex: Male

DRUGS (5)
  1. LORAZEPAM [Concomitant]
     Indication: AGITATION
     Dosage: 1 MG, PRN
     Route: 048
  2. RANITIDINE [Concomitant]
     Dosage: 300 MG, QD
     Route: 048
  3. CLOZARIL [Suspect]
     Indication: SCHIZOPHRENIA
     Dosage: 700 MG, QD
     Route: 048
     Dates: start: 20000101
  4. ARIPIPRAZOLE [Concomitant]
     Indication: SCHIZOPHRENIA
     Dosage: 20 MG, QD
     Route: 048
  5. VALPROIC ACID [Concomitant]
     Indication: AGITATION
     Dosage: 1500 MG, QD
     Route: 048

REACTIONS (2)
  - ASTHMA [None]
  - THROMBOCYTOPENIA [None]
